FAERS Safety Report 8303550-0 (Version None)
Quarter: 2012Q2

REPORT INFORMATION
  Report Type: 
  Country: None (occurrence: None)
  Receive Date: 20120418
  Receipt Date: 20120405
  Transmission Date: 20120825
  Serious: Yes (Hospitalization, Other)
  Sender: FDA-Public Use
  Company Number: WAES 1203USA00907

PATIENT
  Age: 49 Year
  Sex: Male

DRUGS (2)
  1. ATORVASTATIN CALCIUM [Concomitant]
  2. CAP VORINOSTAT [Suspect]
     Indication: MYCOSIS FUNGOIDES
     Dosage: 400 MG/DAILY, PO
     Route: 048
     Dates: end: 20120227

REACTIONS (5)
  - GASTROINTESTINAL DISORDER [None]
  - ABDOMINAL ADHESIONS [None]
  - ACUTE ABDOMEN [None]
  - INTESTINAL OBSTRUCTION [None]
  - RESPIRATORY FAILURE [None]
